FAERS Safety Report 16846458 (Version 2)
Quarter: 2019Q3

REPORT INFORMATION
  Report Type: Report from Study
  Country: US (occurrence: US)
  Receive Date: 20190924
  Receipt Date: 20190925
  Transmission Date: 20191005
  Serious: Yes (Death, Other)
  Sender: FDA-Public Use
  Company Number: US-GLAXOSMITHKLINE-2019-TSO03128-US

PATIENT
  Age: 77 Year
  Sex: Male
  Weight: 62.5 kg

DRUGS (22)
  1. ALBUTEROL                          /00139501/ [Concomitant]
     Active Substance: ALBUTEROL
     Dosage: 2.5 MG, 1 IN 1 D
     Route: 055
     Dates: start: 2009
  2. SERTRALINE [Concomitant]
     Active Substance: SERTRALINE HYDROCHLORIDE
     Dosage: 100 MG, 1 IN 1 D
     Route: 048
     Dates: start: 2013
  3. MIRALAX [Concomitant]
     Active Substance: POLYETHYLENE GLYCOL 3350
     Indication: CONSTIPATION
     Dosage: 17 G, 1 IN 1 D
     Route: 048
  4. MAGNESIUM CITRATE. [Concomitant]
     Active Substance: MAGNESIUM CITRATE
     Indication: CONSTIPATION
     Dosage: 17.45 G, 2 IN 1 D
     Route: 048
     Dates: start: 20190829, end: 20190831
  5. NIRAPARIB [Suspect]
     Active Substance: NIRAPARIB
     Dosage: 200 MG, QD
     Route: 048
     Dates: start: 20190904, end: 20190904
  6. ONDANSETRON [Concomitant]
     Active Substance: ONDANSETRON
     Dosage: 8 MG, 1 IN 1 AS REQUIRED
     Route: 048
     Dates: start: 20190725
  7. DIAZEPAM. [Concomitant]
     Active Substance: DIAZEPAM
     Dosage: 10 MG, 2 IN 1 D
     Route: 048
     Dates: start: 201808
  8. SODIUM CHLORIDE. [Concomitant]
     Active Substance: SODIUM CHLORIDE
     Dosage: 1000 ML, UNK
     Route: 042
     Dates: start: 20190815, end: 20190815
  9. NIRAPARIB [Suspect]
     Active Substance: NIRAPARIB
     Dosage: 200 MG, QD
     Route: 048
     Dates: start: 20190725
  10. ACETAMINOPHEN. [Concomitant]
     Active Substance: ACETAMINOPHEN
     Dosage: 500 MG, IN 1 AS REQUIRED
     Route: 048
     Dates: start: 2019
  11. PROCHLORPERAZINE. [Concomitant]
     Active Substance: PROCHLORPERAZINE
     Dosage: 10 MG, 1 IN 1 AS REQUIRED
     Route: 048
     Dates: start: 20190725
  12. TAMSULOSIN [Concomitant]
     Active Substance: TAMSULOSIN
     Dosage: 0.4 MG, 1 IN 1 D
  13. SODIUM CHLORIDE. [Concomitant]
     Active Substance: SODIUM CHLORIDE
     Indication: BLOOD CREATININE INCREASED
     Dosage: 500 ML, UNK
     Route: 042
     Dates: start: 20190808, end: 20190808
  14. SENNA [Concomitant]
     Active Substance: SENNA LEAF\SENNOSIDES\SENNOSIDES A AND B
     Indication: CONSTIPATION
     Dosage: 8.6 MG, 1 IN 1 D
     Route: 048
  15. ATEZOLIZUMAB. [Suspect]
     Active Substance: ATEZOLIZUMAB
     Dosage: 1200 MG, ONCE IN 3 WEEKS ON DAY 1 OF EACH 21-DAY CYCLE
     Route: 042
     Dates: start: 20190725
  16. VITAMIN C [Concomitant]
     Active Substance: ASCORBIC ACID
     Dosage: 100 UNK, 1 IN 1 D
     Route: 048
     Dates: start: 201808
  17. CLOPIDOGREL [Concomitant]
     Active Substance: CLOPIDOGREL BISULFATE
     Dosage: 75 MG, 1 IN 1 D
     Route: 048
     Dates: start: 2010
  18. COLACE [Concomitant]
     Active Substance: DOCUSATE SODIUM
     Indication: CONSTIPATION
     Dosage: 1 IN 1 D
     Route: 048
  19. ATEZOLIZUMAB. [Suspect]
     Active Substance: ATEZOLIZUMAB
     Dosage: 1200 MG, ONCE IN 3 WEEKS
     Route: 042
     Dates: start: 20190815, end: 20190815
  20. FISH OIL [Concomitant]
     Active Substance: FISH OIL
     Dosage: 1000 MG, 2 IN 1 D
     Dates: start: 201808
  21. CARVEDILOL. [Concomitant]
     Active Substance: CARVEDILOL
     Dosage: 3.125 MG, 2 IN 1 D
     Route: 048
     Dates: start: 2013
  22. PRAVASTATIN. [Concomitant]
     Active Substance: PRAVASTATIN
     Dosage: 40 MG, 1 IN 1 D
     Route: 048
     Dates: start: 2013

REACTIONS (1)
  - Cardio-respiratory arrest [Fatal]

NARRATIVE: CASE EVENT DATE: 20190904
